FAERS Safety Report 19247799 (Version 2)
Quarter: 2021Q2

REPORT INFORMATION
  Report Type: Spontaneous
  Country: US (occurrence: US)
  Receive Date: 20210512
  Receipt Date: 20210603
  Transmission Date: 20210717
  Serious: Yes (Hospitalization, Other)
  Sender: FDA-Public Use
  Company Number: NVSC2021US102640

PATIENT
  Age: 2 Year
  Sex: Female
  Weight: 14.5 kg

DRUGS (7)
  1. KYMRIAH [Suspect]
     Active Substance: TISAGENLECLEUCEL
     Indication: B-CELL TYPE ACUTE LEUKAEMIA
     Dosage: UNK UNK, ONCE/SINGLE (SUSPENSION)
     Route: 042
     Dates: start: 20210422, end: 20210422
  2. MEROPENEM. [Concomitant]
     Active Substance: MEROPENEM
     Dosage: 20 MG/KG, Q8H
     Route: 042
     Dates: start: 20210421
  3. MEROPENEM. [Concomitant]
     Active Substance: MEROPENEM
     Indication: INFECTION
     Dosage: 20 MG/KG, Q8H
     Route: 042
     Dates: start: 20210417
  4. CEFEPIME [Concomitant]
     Active Substance: CEFEPIME HYDROCHLORIDE
     Indication: INFECTION
     Dosage: 50 MG/KG, Q8H
     Route: 042
     Dates: start: 20210221, end: 20210510
  5. LACOSAMIDE. [Concomitant]
     Active Substance: LACOSAMIDE
     Indication: SEIZURE PROPHYLAXIS
     Dosage: 25 MG, Q12H
     Route: 048
     Dates: start: 20210221, end: 20210505
  6. KEPPRA [Concomitant]
     Active Substance: LEVETIRACETAM
     Indication: SEIZURE PROPHYLAXIS
     Dosage: 30 MG/KG, Q12H
     Route: 048
     Dates: start: 20210221, end: 20210505
  7. VANCOMYCIN [Concomitant]
     Active Substance: VANCOMYCIN
     Indication: INFECTION
     Dosage: 15 MG/KG, Q8H
     Route: 042
     Dates: start: 20210426

REACTIONS (8)
  - Cytokine release syndrome [Recovered/Resolved]
  - Hypotension [Unknown]
  - Heart rate increased [Recovered/Resolved]
  - Abdominal distension [Unknown]
  - Respiratory rate increased [Recovered/Resolved]
  - Pyrexia [Recovered/Resolved]
  - Labile blood pressure [Unknown]
  - Pleural effusion [Unknown]

NARRATIVE: CASE EVENT DATE: 20210422
